FAERS Safety Report 5034157-9 (Version None)
Quarter: 2006Q2

REPORT INFORMATION
  Report Type: 
  Country: None (occurrence: None)
  Receive Date: 20060626
  Receipt Date: 20060622
  Transmission Date: 20061013
  Serious: Yes (Other)
  Sender: FDA-Public Use
  Company Number: US-GLAXOSMITHKLINE-A0609996A

PATIENT
  Age: 63 Year
  Sex: Male

DRUGS (2)
  1. NICORETTE (MINT) [Suspect]
     Dosage: 4MG SEE DOSAGE TEXT
     Route: 002
     Dates: end: 20060621
  2. COUMADIN [Concomitant]

REACTIONS (8)
  - CONVULSION [None]
  - DEPENDENCE [None]
  - DYSPHAGIA [None]
  - GASTRIC DISORDER [None]
  - INTENTIONAL DRUG MISUSE [None]
  - OESOPHAGEAL DISORDER [None]
  - OVERDOSE [None]
  - WEIGHT DECREASED [None]
